FAERS Safety Report 4324661-0 (Version None)
Quarter: 2004Q1

REPORT INFORMATION
  Report Type: 
  Country: None (occurrence: None)
  Receive Date: 20040323
  Receipt Date: 20040309
  Transmission Date: 20041129
  Serious: No
  Sender: FDA-Public Use
  Company Number: 7617

PATIENT
  Age: 77 Year
  Sex: Male

DRUGS (1)
  1. PAMIDRONATE SODIUM [Suspect]
     Indication: OSTEOLYSIS
     Dosage: IV
     Route: 042

REACTIONS (4)
  - CONJUNCTIVAL OEDEMA [None]
  - DIPLOPIA [None]
  - ERYTHEMA [None]
  - EYELID OEDEMA [None]
